FAERS Safety Report 24549465 (Version 2)
Quarter: 2024Q4

REPORT INFORMATION
  Report Type: Spontaneous
  Country: HU (occurrence: HU)
  Receive Date: 20241025
  Receipt Date: 20241205
  Transmission Date: 20250114
  Serious: Yes (Life-Threatening, Hospitalization)
  Sender: MYLAN
  Company Number: HU-MYLANLABS-2024M1095703

PATIENT
  Age: 69 Year
  Sex: Male
  Weight: 150 kg

DRUGS (15)
  1. METOPROLOL [Suspect]
     Active Substance: METOPROLOL
     Indication: Ventricular tachycardia
     Dosage: 75 MILLIGRAM, BID (50 MG IN THE MORNIN G, 25 MG IN THE EVENIN G)
     Route: 048
  2. METOPROLOL [Suspect]
     Active Substance: METOPROLOL
     Indication: Heart failure with reduced ejection fraction
  3. AMIODARONE [Suspect]
     Active Substance: AMIODARONE
     Indication: Ventricular tachycardia
     Dosage: 200 MILLIGRAM, QD
     Route: 048
  4. SPIRONOLACTONE [Concomitant]
     Active Substance: SPIRONOLACTONE
     Indication: Heart failure with reduced ejection fraction
     Dosage: 25 MILLIGRAM, QD
     Route: 048
  5. APIXABAN [Concomitant]
     Active Substance: APIXABAN
     Indication: Atrial fibrillation
     Dosage: 5 MILLIGRAM, BID
     Route: 048
  6. FUROSEMIDE [Concomitant]
     Active Substance: FUROSEMIDE
     Indication: Heart failure with reduced ejection fraction
     Dosage: 40 MILLIGRAM, QOD
     Route: 048
  7. POTASSIUM CHLORIDE [Concomitant]
     Active Substance: POTASSIUM CHLORIDE
     Indication: Prophylaxis
     Dosage: 600 MILLIGRAM, QOD
     Route: 048
  8. FAMOTIDINE [Concomitant]
     Active Substance: FAMOTIDINE
     Indication: Ulcer
     Dosage: 40 MILLIGRAM, QD
     Route: 048
  9. FAMOTIDINE [Concomitant]
     Active Substance: FAMOTIDINE
     Indication: Prophylaxis
  10. EMPAGLIFLOZIN\METFORMIN HYDROCHLORIDE [Concomitant]
     Active Substance: EMPAGLIFLOZIN\METFORMIN HYDROCHLORIDE
     Indication: Type 2 diabetes mellitus
     Dosage: UNK, BID
     Route: 048
  11. EMPAGLIFLOZIN\METFORMIN HYDROCHLORIDE [Concomitant]
     Active Substance: EMPAGLIFLOZIN\METFORMIN HYDROCHLORIDE
     Indication: Heart failure with reduced ejection fraction
  12. AMLODIPINE BESYLATE\LISINOPRIL [Concomitant]
     Active Substance: AMLODIPINE BESYLATE\LISINOPRIL
     Indication: Heart failure with reduced ejection fraction
     Dosage: UNK, QD
     Route: 048
  13. AMLODIPINE BESYLATE\LISINOPRIL [Concomitant]
     Active Substance: AMLODIPINE BESYLATE\LISINOPRIL
     Indication: Hypertension
  14. DOXAZOSIN [Concomitant]
     Active Substance: DOXAZOSIN\DOXAZOSIN MESYLATE
     Indication: Hypertension
     Dosage: 4 MILLIGRAM, QD
     Route: 048
  15. SEMAGLUTIDE [Concomitant]
     Active Substance: SEMAGLUTIDE
     Indication: Type 2 diabetes mellitus
     Dosage: 0.5 MILLIGRAM, QW
     Route: 058

REACTIONS (1)
  - Drug ineffective [Unknown]
